FAERS Safety Report 5694880-X (Version None)
Quarter: 2008Q2

REPORT INFORMATION
  Report Type: 
  Country: None (occurrence: None)
  Receive Date: 20080404
  Receipt Date: 20080303
  Transmission Date: 20081010
  Serious: No
  Sender: FDA-Public Use
  Company Number: A0712955A

PATIENT
  Age: 59 Year
  Sex: Female

DRUGS (11)
  1. ADVAIR HFA [Suspect]
     Indication: ASTHMA
     Dosage: 2PUFF TWICE PER DAY
     Route: 055
     Dates: start: 20080101
  2. MAXZIDE [Concomitant]
  3. VERELAN [Concomitant]
  4. DIOVAN [Concomitant]
  5. PRAVASTATIN [Concomitant]
  6. ATROVENT [Concomitant]
  7. ZANTAC [Concomitant]
  8. CALCIUM [Concomitant]
  9. EVISTA [Concomitant]
  10. BONIVA [Concomitant]
  11. VERAMYST [Concomitant]

REACTIONS (1)
  - OEDEMA PERIPHERAL [None]
